FAERS Safety Report 9443306 (Version 2)
Quarter: 2013Q4

REPORT INFORMATION
  Report Type: Spontaneous
  Country: US (occurrence: US)
  Receive Date: 20130806
  Receipt Date: 20131028
  Transmission Date: 20140711
  Serious: Yes (Hospitalization)
  Sender: FDA-Public Use
  Company Number: US-GLAXOSMITHKLINE-A1035568A

PATIENT
  Age: 82 Year
  Sex: Female

DRUGS (6)
  1. ADVAIR [Suspect]
     Indication: CHRONIC OBSTRUCTIVE PULMONARY DISEASE
     Route: 065
     Dates: start: 201212
  2. PAIN MEDICATION [Concomitant]
  3. UNKNOWN [Concomitant]
  4. BLOOD PRESSURE MEDICATION [Concomitant]
  5. DIURETIC [Concomitant]
  6. ALLERGY MEDICATION [Concomitant]

REACTIONS (2)
  - Hospitalisation [Unknown]
  - Rehabilitation therapy [Not Recovered/Not Resolved]
